FAERS Safety Report 5314890-1 (Version None)
Quarter: 2007Q2

REPORT INFORMATION
  Report Type: 
  Country: None (occurrence: None)
  Receive Date: 20070502
  Receipt Date: 20070417
  Transmission Date: 20071010
  Serious: Yes (Death, Hospitalization)
  Sender: FDA-Public Use
  Company Number: CO-SHR-CO-2007-014010

PATIENT
  Age: 26 Year
  Sex: Female

DRUGS (2)
  1. BETASERON [Suspect]
     Dosage: UNK MIU, UNK
     Route: 058
  2. TRAMADOL HCL [Suspect]
     Indication: PAIN
     Dosage: 1 AMP, 1 DOSE
     Route: 030
     Dates: start: 20070417, end: 20070417

REACTIONS (2)
  - ANAPHYLACTIC SHOCK [None]
  - DYSPNOEA [None]
